FAERS Safety Report 5936694-9 (Version None)
Quarter: 2008Q4

REPORT INFORMATION
  Report Type: 
  Country: None (occurrence: None)
  Receive Date: 20081030
  Receipt Date: 20081024
  Transmission Date: 20090506
  Serious: Yes (Hospitalization)
  Sender: FDA-Public Use
  Company Number: CN-MERCK-0810USA04448

PATIENT
  Age: 34 Year
  Sex: Male

DRUGS (4)
  1. DECADRON [Suspect]
     Route: 048
  2. DECADRON [Suspect]
     Route: 048
  3. [THERAPY UNSPECIFIED] [Concomitant]
     Route: 065
  4. METRISONE [Suspect]
     Route: 065

REACTIONS (4)
  - BRONCHOPLEURAL FISTULA [None]
  - BRONCHOPULMONARY ASPERGILLOSIS [None]
  - HYDROPNEUMOTHORAX [None]
  - PYOTHORAX [None]
